FAERS Safety Report 11464413 (Version 1)
Quarter: 2015Q3

REPORT INFORMATION
  Report Type: Spontaneous
  Country: US (occurrence: US)
  Receive Date: 20150831
  Receipt Date: 20150831
  Transmission Date: 20151125
  Serious: No
  Sender: FDA-Public Use
  Company Number: US-ELI_LILLY_AND_COMPANY-US201107001198

PATIENT
  Age: 47 Year
  Sex: Female

DRUGS (1)
  1. CYMBALTA [Suspect]
     Active Substance: DULOXETINE HYDROCHLORIDE
     Indication: PAIN
     Dosage: 60 MG, QD

REACTIONS (9)
  - Disturbance in attention [Unknown]
  - Aggression [Unknown]
  - Feeling abnormal [Unknown]
  - Irritability [Unknown]
  - Asthenia [Unknown]
  - Memory impairment [Unknown]
  - Drug ineffective [Not Recovered/Not Resolved]
  - Impatience [Unknown]
  - Depressed mood [Unknown]
